FAERS Safety Report 4860975-3 (Version None)
Quarter: 2005Q4

REPORT INFORMATION
  Report Type: 
  Country: None (occurrence: None)
  Receive Date: 20051216
  Receipt Date: 20051209
  Transmission Date: 20060501
  Serious: Yes (Hospitalization)
  Sender: FDA-Public Use
  Company Number: 200511170BVD

PATIENT
  Age: 76 Year
  Sex: Male
  Weight: 68 kg

DRUGS (5)
  1. AVELOX [Suspect]
     Indication: BRONCHITIS ACUTE
     Dosage: 400 MG, ORAL
     Route: 048
     Dates: start: 20041111, end: 20041117
  2. PREDNISOLONE [Concomitant]
  3. FORADIL [Concomitant]
  4. MIFLONIDE [Concomitant]
  5. SPIRIVA [Concomitant]

REACTIONS (2)
  - GASTROENTERITIS [None]
  - TACHYCARDIA [None]
